FAERS Safety Report 10484279 (Version 2)
Quarter: 2014Q4

REPORT INFORMATION
  Report Type: Spontaneous
  Country: US (occurrence: US)
  Receive Date: 20140930
  Receipt Date: 20141022
  Transmission Date: 20150528
  Serious: Yes (Death, Hospitalization)
  Sender: FDA-Public Use
  Company Number: US-ACTELION-A-US2014-105624

PATIENT
  Age: 69 Year
  Sex: Male

DRUGS (1)
  1. OPSUMIT [Suspect]
     Active Substance: MACITENTAN
     Indication: PULMONARY ARTERIAL HYPERTENSION
     Dosage: 10 MG, QD
     Route: 048
     Dates: start: 20140528, end: 20140907

REACTIONS (6)
  - Sepsis [Fatal]
  - Acute kidney injury [Fatal]
  - Septic shock [Fatal]
  - Pulmonary arterial hypertension [Fatal]
  - Urinary tract infection [Unknown]
  - Respiratory failure [Unknown]
